FAERS Safety Report 9358017 (Version 2)
Quarter: 2014Q2

REPORT INFORMATION
  Report Type: Spontaneous
  Country: US (occurrence: US)
  Receive Date: 20130620
  Receipt Date: 20140508
  Transmission Date: 20141212
  Serious: Yes (Hospitalization, Other)
  Sender: FDA-Public Use
  Company Number: US-BAYER-2013-075708

PATIENT
  Age: 35 Year
  Sex: Female

DRUGS (13)
  1. YAZ [Suspect]
     Dosage: UNK
     Dates: start: 201005, end: 20110508
  2. YASMIN [Suspect]
     Dosage: UNK
     Dates: start: 201005, end: 20110508
  3. OCELLA [Suspect]
     Dosage: UNK
     Dates: start: 201005, end: 20110508
  4. GIANVI [Suspect]
     Dosage: UNK
     Dates: start: 201005, end: 20110508
  5. TRAMADOL [Concomitant]
     Dosage: 50 MG, UNK
  6. GABAPENTIN [Concomitant]
     Dosage: 600 MG, UNK
  7. TOPAMAX [Concomitant]
     Dosage: 25 MG, UNK
  8. KLONOPIN [Concomitant]
     Dosage: 1 MG, UNK
  9. LEXAPRO [Concomitant]
     Dosage: 10 MG, UNK
  10. VENTOLIN HFA [Concomitant]
  11. PHENTERMINE [Concomitant]
     Dosage: 37.5 MG, UNK
  12. XANAX [Concomitant]
     Dosage: 0.5 MG, UNK
  13. ALLEGRA [Concomitant]

REACTIONS (9)
  - Deep vein thrombosis [None]
  - Pulmonary embolism [None]
  - Injury [None]
  - Thrombophlebitis superficial [None]
  - Pain [None]
  - Emotional distress [None]
  - Depression [None]
  - Fear of death [None]
  - Nervousness [None]
